FAERS Safety Report 6368726-0 (Version None)
Quarter: 2009Q3

REPORT INFORMATION
  Report Type: 
  Country: None (occurrence: None)
  Receive Date: 20090916
  Receipt Date: 20090904
  Transmission Date: 20100115
  Serious: Yes (Death, Hospitalization)
  Sender: FDA-Public Use
  Company Number: 2008-183409-NL

PATIENT
  Age: 25 Year
  Sex: Female
  Weight: 102.0593 kg

DRUGS (3)
  1. NUVARING [Suspect]
     Indication: CONTRACEPTION
     Dosage: 1 DF; QM
     Dates: start: 20060809, end: 20060907
  2. DOANS PILLS (MAGNESIUM SALICYLATE) [Concomitant]
  3. MOTRIN [Concomitant]

REACTIONS (33)
  - ANOXIC ENCEPHALOPATHY [None]
  - APNOEIC ATTACK [None]
  - ARRHYTHMIA [None]
  - ASCITES [None]
  - ASPARTATE AMINOTRANSFERASE INCREASED [None]
  - ASPIRATION [None]
  - ATELECTASIS [None]
  - BACK PAIN [None]
  - BLOOD ALKALINE PHOSPHATASE INCREASED [None]
  - BLOOD CALCIUM DECREASED [None]
  - BRAIN DEATH [None]
  - CARDIO-RESPIRATORY ARREST [None]
  - CYANOSIS [None]
  - DISSEMINATED INTRAVASCULAR COAGULATION [None]
  - HAEMORRHAGE [None]
  - HEPATIC FAILURE [None]
  - HEPATIC STEATOSIS [None]
  - LUNG CONSOLIDATION [None]
  - LUNG INFILTRATION [None]
  - MALAISE [None]
  - METABOLIC ACIDOSIS [None]
  - MULTI-ORGAN FAILURE [None]
  - MUSCLE SPASMS [None]
  - NAUSEA [None]
  - OEDEMA [None]
  - PAIN IN EXTREMITY [None]
  - PULMONARY INFARCTION [None]
  - PULSE ABSENT [None]
  - REPERFUSION INJURY [None]
  - SEPSIS SYNDROME [None]
  - SEPTIC SHOCK [None]
  - VOMITING [None]
  - WHITE BLOOD CELL COUNT INCREASED [None]
